FAERS Safety Report 24984829 (Version 1)
Quarter: 2025Q1

REPORT INFORMATION
  Report Type: Spontaneous
  Country: IL (occurrence: IL)
  Receive Date: 20250219
  Receipt Date: 20250219
  Transmission Date: 20250409
  Serious: Yes (Other)
  Sender: AMGEN
  Company Number: IL-AMGEN-ISRSP2025033160

PATIENT

DRUGS (1)
  1. BEVACIZUMAB [Suspect]
     Active Substance: BEVACIZUMAB
     Indication: Non-small cell lung cancer stage IV
     Route: 065

REACTIONS (11)
  - Metastases to central nervous system [Unknown]
  - Non-small cell lung cancer metastatic [Unknown]
  - Gait disturbance [Unknown]
  - Apathy [Unknown]
  - Visual field defect [Unknown]
  - Dysphagia [Unknown]
  - Dizziness [Unknown]
  - Vision blurred [Unknown]
  - Dysarthria [Unknown]
  - Asthenia [Unknown]
  - Headache [Unknown]
